FAERS Safety Report 9027878 (Version 2)
Quarter: 2013Q3

REPORT INFORMATION
  Report Type: Spontaneous
  Country: US (occurrence: US)
  Receive Date: 20130124
  Receipt Date: 20130906
  Transmission Date: 20140515
  Serious: Yes (Death, Hospitalization)
  Sender: FDA-Public Use
  Company Number: US-RANBAXY-2010US-37365

PATIENT
  Age: 71 Year
  Sex: Female

DRUGS (2)
  1. AMLODIPINE [Suspect]
     Indication: PRODUCT USED FOR UNKNOWN INDICATION
     Dosage: UNK
     Route: 048
  2. INTRALIPID [Suspect]
     Indication: OVERDOSE
     Dosage: UNK
     Route: 042

REACTIONS (3)
  - Overdose [Fatal]
  - Medication error [Fatal]
  - Accidental overdose [Fatal]
